FAERS Safety Report 6655972-1 (Version None)
Quarter: 2010Q1

REPORT INFORMATION
  Report Type: 
  Country: None (occurrence: None)
  Receive Date: 20100329
  Receipt Date: 20100322
  Transmission Date: 20100710
  Serious: Yes (Other)
  Sender: FDA-Public Use
  Company Number: PHEH2006US03612

PATIENT

DRUGS (19)
  1. ZOMETA [Suspect]
     Dosage: 4 MG, QMO
     Dates: start: 20030131, end: 20051101
  2. METHADONE [Concomitant]
     Indication: DRUG DEPENDENCE
     Dates: start: 20000101
  3. AVASTIN [Concomitant]
  4. ADRIAMYCIN PFS [Concomitant]
  5. ZINECARD [Concomitant]
  6. ANTIBIOTICS [Concomitant]
     Indication: OSTEONECROSIS
     Dates: start: 20070601
  7. DILAUDID [Concomitant]
  8. DIPHENHYDRAMINE HYDROCHLORIDE [Concomitant]
  9. HYDROMORPHONE HCL [Concomitant]
  10. METOCLOPRAMIDE [Concomitant]
  11. NALBUPHINE [Concomitant]
  12. ONDANSETRON [Concomitant]
  13. SENOKOT                                 /UNK/ [Concomitant]
  14. LORAZEPAM [Concomitant]
  15. PROCRIT                            /00909301/ [Concomitant]
  16. NEUPOGEN [Concomitant]
  17. SCOPOLAMINE [Concomitant]
  18. NEUPOGEN [Concomitant]
  19. NALOXONE [Concomitant]

REACTIONS (19)
  - ANXIETY [None]
  - BONE CYST [None]
  - BONE FRAGMENTATION [None]
  - CENTRAL VENOUS CATHETERISATION [None]
  - DEBRIDEMENT [None]
  - DENTAL OPERATION [None]
  - DEVICE RELATED INFECTION [None]
  - DYSPNOEA [None]
  - INJURY [None]
  - LEFT ATRIAL DILATATION [None]
  - METASTASES TO BONE [None]
  - OSTEOMYELITIS [None]
  - OSTEONECROSIS [None]
  - PAIN IN JAW [None]
  - PANCYTOPENIA [None]
  - PARAESTHESIA [None]
  - RIGHT ATRIAL DILATATION [None]
  - TOOTH DISORDER [None]
  - TRICUSPID VALVE INCOMPETENCE [None]
